FAERS Safety Report 6425902-6 (Version None)
Quarter: 2009Q4

REPORT INFORMATION
  Report Type: 
  Country: None (occurrence: None)
  Receive Date: 20091030
  Receipt Date: 20091016
  Transmission Date: 20100525
  Serious: No
  Sender: FDA-Public Use
  Company Number: 2009AC000282

PATIENT
  Age: 77 Year
  Sex: Female

DRUGS (3)
  1. DIGOXIN [Suspect]
     Dosage: 0.125 MG;QD;PO
     Route: 048
     Dates: start: 20080423
  2. LISINOPRIL [Concomitant]
  3. LEVAQUIN [Concomitant]

REACTIONS (9)
  - ECONOMIC PROBLEM [None]
  - HYPONATRAEMIA [None]
  - HYPOVOLAEMIA [None]
  - LIVER FUNCTION TEST ABNORMAL [None]
  - MULTIPLE INJURIES [None]
  - PYELONEPHRITIS [None]
  - SURGERY [None]
  - THERAPEUTIC AGENT TOXICITY [None]
  - URINARY TRACT INFECTION [None]
